FAERS Safety Report 9447203 (Version 1)
Quarter: 2013Q3

REPORT INFORMATION
  Report Type: Report from Study
  Country: NL (occurrence: NL)
  Receive Date: 20130807
  Receipt Date: 20130807
  Transmission Date: 20140515
  Serious: Yes (Death, Hospitalization)
  Sender: FDA-Public Use
  Company Number: NL-TEVA-421723ISR

PATIENT
  Age: 58 Year
  Sex: Female

DRUGS (3)
  1. MYOCET [Suspect]
     Indication: BREAST CANCER METASTATIC
     Dosage: 68 MILLIGRAM DAILY;
     Route: 042
     Dates: start: 20130603, end: 20130603
  2. PACLITAXEL [Suspect]
     Indication: BREAST CANCER METASTATIC
     Dosage: 162 MILLIGRAM DAILY;
     Route: 042
     Dates: start: 20121121, end: 20130228
  3. BEVACIZUMAB [Suspect]
     Indication: BREAST CANCER METASTATIC
     Dosage: 1075 MILLIGRAM DAILY;
     Route: 042
     Dates: start: 20121121, end: 20130523

REACTIONS (3)
  - Abdominal pain [Not Recovered/Not Resolved]
  - Hepatic failure [Fatal]
  - Disease progression [Fatal]
